FAERS Safety Report 16227980 (Version 1)
Quarter: 2019Q2

REPORT INFORMATION
  Report Type: Spontaneous
  Country: US (occurrence: US)
  Receive Date: 20190423
  Receipt Date: 20190423
  Transmission Date: 20190711
  Serious: No
  Sender: FDA-Public Use
  Company Number: US-VERTEX PHARMACEUTICALS-2019-003600

PATIENT
  Age: 65 Year
  Sex: Female

DRUGS (1)
  1. ORKAMBI [Suspect]
     Active Substance: IVACAFTOR\LUMACAFTOR
     Indication: CYSTIC FIBROSIS
     Dosage: 400/250 MG TABLET, BID
     Route: 048
     Dates: start: 20160202

REACTIONS (1)
  - Respiratory symptom [Not Recovered/Not Resolved]

NARRATIVE: CASE EVENT DATE: 20190416
